FAERS Safety Report 4627294-1 (Version None)
Quarter: 2005Q2

REPORT INFORMATION
  Report Type: 
  Country: None (occurrence: None)
  Receive Date: 20050405
  Receipt Date: 20031114
  Transmission Date: 20051028
  Serious: Yes (Hospitalization)
  Sender: FDA-Public Use
  Company Number: GR-BOEHRINGER INGELHEIM PHARM. INC.-2003-BP-09689BP

PATIENT
  Sex: Female
  Weight: 56 kg

DRUGS (10)
  1. MICARDIS [Suspect]
     Indication: CARDIOVASCULAR DISORDER
     Route: 048
     Dates: start: 20030508, end: 20030730
  2. MICARDIS [Suspect]
     Indication: CEREBROVASCULAR ACCIDENT PROPHYLAXIS
  3. RAMIPRIL [Suspect]
     Indication: CARDIOVASCULAR DISORDER
     Route: 048
     Dates: start: 20030508, end: 20030730
  4. RAMIPRIL [Suspect]
     Indication: CEREBROVASCULAR ACCIDENT PROPHYLAXIS
  5. AMLODIPINE [Concomitant]
  6. DAONIL [Concomitant]
  7. SELOSPIR [Concomitant]
  8. MOXONIDINE [Concomitant]
  9. INSULIN [Concomitant]
     Indication: DIABETES MELLITUS
  10. DIURETICS [Concomitant]

REACTIONS (5)
  - ASTHENIA [None]
  - DIZZINESS [None]
  - HYPERKALAEMIA [None]
  - OLIGURIA [None]
  - RENAL IMPAIRMENT [None]
